FAERS Safety Report 11116895 (Version 1)
Quarter: 2015Q2

REPORT INFORMATION
  Report Type: Spontaneous
  Country: US (occurrence: US)
  Receive Date: 20150515
  Receipt Date: 20150515
  Transmission Date: 20150821
  Serious: Yes (Other)
  Sender: FDA-Public Use
  Company Number: US-ELI_LILLY_AND_COMPANY-US201505004625

PATIENT
  Age: 20 Year
  Sex: Female

DRUGS (2)
  1. PRENATAL VITAMINS                  /08195401/ [Concomitant]
  2. PROZAC [Suspect]
     Active Substance: FLUOXETINE HYDROCHLORIDE
     Indication: PRODUCT USED FOR UNKNOWN INDICATION
     Dosage: 1 DF, UNKNOWN
     Route: 064

REACTIONS (2)
  - Preterm premature rupture of membranes [Unknown]
  - Maternal exposure timing unspecified [Recovered/Resolved]
